FAERS Safety Report 4427560-9 (Version None)
Quarter: 2004Q3

REPORT INFORMATION
  Report Type: 
  Country: None (occurrence: None)
  Receive Date: 20040812
  Receipt Date: 20040728
  Transmission Date: 20050211
  Serious: Yes (Hospitalization)
  Sender: FDA-Public Use
  Company Number: 2004-07-1592

PATIENT
  Age: 68 Year
  Sex: Male

DRUGS (2)
  1. CLARITIN [Suspect]
     Indication: URTICARIA
     Dosage: 1 TAB/DAY ORAL
     Route: 048
     Dates: start: 20040410, end: 20040414
  2. CYPROHEPTADINE HCL [Concomitant]

REACTIONS (5)
  - ANOREXIA [None]
  - DIZZINESS [None]
  - FATIGUE [None]
  - HEPATIC LESION [None]
  - LIVER FUNCTION TEST ABNORMAL [None]
